FAERS Safety Report 8507178-9 (Version None)
Quarter: 2012Q3

REPORT INFORMATION
  Report Type: 
  Country: None (occurrence: None)
  Receive Date: 20120712
  Receipt Date: 20120710
  Transmission Date: 20120928
  Serious: Yes (Death)
  Sender: FDA-Public Use
  Company Number: CHPA2012US014686

PATIENT
  Sex: Male

DRUGS (1)
  1. BENEFIBER W/ WHEAT DEXTRIN [Suspect]
     Indication: LAXATIVE SUPPORTIVE CARE
     Dosage: UNK, UNK
     Route: 048
     Dates: start: 20120301

REACTIONS (3)
  - STRESS [None]
  - MYOCARDIAL INFARCTION [None]
  - OFF LABEL USE [None]
